FAERS Safety Report 4963619-5 (Version None)
Quarter: 2006Q1

REPORT INFORMATION
  Report Type: 
  Country: None (occurrence: None)
  Receive Date: 20060201
  Receipt Date: 20051106
  Transmission Date: 20060701
  Serious: No
  Sender: FDA-Public Use
  Company Number: 2005PV004672

PATIENT
  Age: 59 Year
  Sex: Female
  Weight: 66.2252 kg

DRUGS (7)
  1. BYETTA [Suspect]
     Indication: DIABETES MELLITUS NON-INSULIN-DEPENDENT
     Dosage: 5 MCG; SC; SEE IMAGE
     Route: 058
     Dates: start: 20050703, end: 20050726
  2. BYETTA [Suspect]
     Indication: DIABETES MELLITUS NON-INSULIN-DEPENDENT
     Dosage: 5 MCG; SC; SEE IMAGE
     Route: 058
     Dates: start: 20050727, end: 20050806
  3. BYETTA [Suspect]
     Indication: DIABETES MELLITUS NON-INSULIN-DEPENDENT
     Dosage: 5 MCG; SC; SEE IMAGE
     Route: 058
     Dates: start: 20050807, end: 20050824
  4. BYETTA [Suspect]
     Indication: DIABETES MELLITUS NON-INSULIN-DEPENDENT
     Dosage: 5 MCG; SC; SEE IMAGE
     Route: 058
     Dates: start: 20050825, end: 20050905
  5. BYETTA [Suspect]
     Indication: DIABETES MELLITUS NON-INSULIN-DEPENDENT
     Dosage: 5 MCG; SC; SEE IMAGE
     Route: 058
     Dates: start: 20050906, end: 20051005
  6. BYETTA [Suspect]
     Indication: DIABETES MELLITUS NON-INSULIN-DEPENDENT
     Dosage: 5 MCG; SC; SEE IMAGE
     Route: 058
     Dates: start: 20051006, end: 20051008
  7. BYETTA [Suspect]
     Indication: DIABETES MELLITUS NON-INSULIN-DEPENDENT
     Dosage: 5 MCG; SC; SEE IMAGE
     Route: 058
     Dates: start: 20051009

REACTIONS (4)
  - BLOOD GLUCOSE INCREASED [None]
  - INCONTINENCE [None]
  - NAUSEA [None]
  - VOMITING [None]
